FAERS Safety Report 4963900-X (Version None)
Quarter: 2006Q2

REPORT INFORMATION
  Report Type: 
  Country: None (occurrence: None)
  Receive Date: 20060405
  Receipt Date: 20051201
  Transmission Date: 20061013
  Serious: Yes (Hospitalization)
  Sender: FDA-Public Use
  Company Number: US-MERCK-0512USA00493

PATIENT
  Age: 70 Year
  Sex: Male
  Weight: 83 kg

DRUGS (2)
  1. VIOXX [Suspect]
     Indication: ANALGESIC EFFECT
     Route: 048
     Dates: start: 19990901, end: 20040901
  2. VIOXX [Suspect]
     Indication: ARTHRITIS
     Route: 048
     Dates: start: 19990901, end: 20040901

REACTIONS (1)
  - MYOCARDIAL INFARCTION [None]
